FAERS Safety Report 9598299 (Version 1)
Quarter: 2013Q4

REPORT INFORMATION
  Report Type: Spontaneous
  Country: US (occurrence: US)
  Receive Date: 20131004
  Receipt Date: 20131004
  Transmission Date: 20140711
  Serious: No
  Sender: FDA-Public Use
  Company Number: US-AMGEN-USASP2013023085

PATIENT
  Age: 56 Year
  Sex: Female
  Weight: 67.57 kg

DRUGS (9)
  1. ENBREL [Suspect]
     Indication: PRODUCT USED FOR UNKNOWN INDICATION
     Dosage: 50 MG, QWK
     Route: 058
  2. CYMBALTA [Concomitant]
     Dosage: 30 MG, UNK
  3. XANAX [Concomitant]
     Dosage: 0.25 MG, UNK
  4. GABAPENTIN [Concomitant]
     Dosage: 300 MG, UNK
  5. ACYCLOVIR                          /00587301/ [Concomitant]
     Dosage: 200 MG, UNK
  6. VAGIFEM [Concomitant]
     Dosage: 100 MUG, UNK
  7. VITAMIN C                          /00008001/ [Concomitant]
     Dosage: 100 MG, UNK
  8. FISH OIL [Concomitant]
     Dosage: UNK UNK, QD
  9. CALCIUM D                          /00944201/ [Concomitant]
     Dosage: UNK

REACTIONS (1)
  - Lung infection [Unknown]
